FAERS Safety Report 25926551 (Version 1)
Quarter: 2025Q4

REPORT INFORMATION
  Report Type: Spontaneous
  Country: EU (occurrence: EU)
  Receive Date: 20251015
  Receipt Date: 20251015
  Transmission Date: 20260117
  Serious: Yes (Other)
  Sender: MYLAN
  Company Number: None

PATIENT
  Age: 95 Year
  Sex: Male

DRUGS (20)
  1. VALPROATE SODIUM [Suspect]
     Active Substance: VALPROATE SODIUM
     Indication: Product used for unknown indication
     Dosage: 250 MILLIGRAM, 1 TOTAL
     Dates: start: 20250808, end: 20250808
  2. VALPROATE SODIUM [Suspect]
     Active Substance: VALPROATE SODIUM
     Dosage: 250 MILLIGRAM, 1 TOTAL
     Route: 048
     Dates: start: 20250808, end: 20250808
  3. VALPROATE SODIUM [Suspect]
     Active Substance: VALPROATE SODIUM
     Dosage: 250 MILLIGRAM, 1 TOTAL
     Route: 048
     Dates: start: 20250808, end: 20250808
  4. VALPROATE SODIUM [Suspect]
     Active Substance: VALPROATE SODIUM
     Dosage: 250 MILLIGRAM, 1 TOTAL
     Dates: start: 20250808, end: 20250808
  5. MIRTAZAPINE [Suspect]
     Active Substance: MIRTAZAPINE
     Indication: Product used for unknown indication
     Dosage: 30 MILLIGRAM, 1 TOTAL
     Dates: start: 20250808, end: 20250808
  6. MIRTAZAPINE [Suspect]
     Active Substance: MIRTAZAPINE
     Dosage: 30 MILLIGRAM, 1 TOTAL
     Route: 048
     Dates: start: 20250808, end: 20250808
  7. MIRTAZAPINE [Suspect]
     Active Substance: MIRTAZAPINE
     Dosage: 30 MILLIGRAM, 1 TOTAL
     Route: 048
     Dates: start: 20250808, end: 20250808
  8. MIRTAZAPINE [Suspect]
     Active Substance: MIRTAZAPINE
     Dosage: 30 MILLIGRAM, 1 TOTAL
     Dates: start: 20250808, end: 20250808
  9. QUETIAPINE [Suspect]
     Active Substance: QUETIAPINE
     Indication: Product used for unknown indication
     Dosage: 200 MILLIGRAM, 1 TOTAL
     Dates: start: 20250808, end: 20250808
  10. QUETIAPINE [Suspect]
     Active Substance: QUETIAPINE
     Dosage: 200 MILLIGRAM, 1 TOTAL
     Route: 048
     Dates: start: 20250808, end: 20250808
  11. QUETIAPINE [Suspect]
     Active Substance: QUETIAPINE
     Dosage: 200 MILLIGRAM, 1 TOTAL
     Route: 048
     Dates: start: 20250808, end: 20250808
  12. QUETIAPINE [Suspect]
     Active Substance: QUETIAPINE
     Dosage: 200 MILLIGRAM, 1 TOTAL
     Dates: start: 20250808, end: 20250808
  13. TAMSULOSIN [4]
     Active Substance: TAMSULOSIN
     Indication: Product used for unknown indication
     Dosage: UNK
  14. TAMSULOSIN [4]
     Active Substance: TAMSULOSIN
     Dosage: UNK
     Route: 065
  15. TAMSULOSIN [4]
     Active Substance: TAMSULOSIN
     Dosage: UNK
     Route: 065
  16. TAMSULOSIN [4]
     Active Substance: TAMSULOSIN
     Dosage: UNK
  17. ELIQUIS [4]
     Active Substance: APIXABAN
     Indication: Product used for unknown indication
     Dosage: UNK
  18. ELIQUIS [4]
     Active Substance: APIXABAN
     Dosage: UNK
     Route: 048
  19. ELIQUIS [4]
     Active Substance: APIXABAN
     Dosage: UNK
     Route: 048
  20. ELIQUIS [4]
     Active Substance: APIXABAN
     Dosage: UNK

REACTIONS (3)
  - Fall [Recovered/Resolved]
  - Confusional state [Recovered/Resolved]
  - Wrong product administered [Recovered/Resolved]

NARRATIVE: CASE EVENT DATE: 20250808
